FAERS Safety Report 6451724-6 (Version None)
Quarter: 2009Q4

REPORT INFORMATION
  Report Type: 
  Country: None (occurrence: None)
  Receive Date: 20091123
  Receipt Date: 20091119
  Transmission Date: 20100525
  Serious: Yes (Hospitalization)
  Sender: FDA-Public Use
  Company Number: FR-WYE-G04923509

PATIENT
  Sex: Male
  Weight: 18.5 kg

DRUGS (3)
  1. ADVIL LIQUI-GELS [Suspect]
     Indication: TONSILLITIS
     Route: 048
     Dates: start: 20090827, end: 20090828
  2. HOMEOPATIC PREPARATION [Concomitant]
     Indication: TONSILLITIS
     Dosage: UNKNOWN
     Route: 048
     Dates: start: 20090827
  3. PYOSTACINE [Concomitant]
     Indication: TONSILLITIS
     Dosage: UNKNOWN
     Route: 048
     Dates: start: 20090827

REACTIONS (7)
  - CONDITION AGGRAVATED [None]
  - HAEMOGLOBIN DECREASED [None]
  - INFLAMMATION [None]
  - MUSCULOSKELETAL STIFFNESS [None]
  - PERITONSILLAR ABSCESS [None]
  - POSTURE ABNORMAL [None]
  - TONSILLITIS [None]
